FAERS Safety Report 19173313 (Version 1)
Quarter: 2021Q2

REPORT INFORMATION
  Report Type: Spontaneous
  Country: US (occurrence: US)
  Receive Date: 20210423
  Receipt Date: 20210423
  Transmission Date: 20210717
  Serious: No
  Sender: FDA-Public Use
  Company Number: US-TAKEDA-2021TUS025801

PATIENT

DRUGS (3)
  1. PEPCID [Suspect]
     Active Substance: FAMOTIDINE
     Indication: PRODUCT USED FOR UNKNOWN INDICATION
     Dosage: UNK
     Route: 065
  2. PREVACID [Suspect]
     Active Substance: LANSOPRAZOLE
     Indication: PRODUCT USED FOR UNKNOWN INDICATION
     Dosage: UNK
     Route: 065
  3. SUTENT [Suspect]
     Active Substance: SUNITINIB MALATE
     Indication: RENAL CANCER
     Dosage: 50 MILLIGRAM, QD
     Route: 048
     Dates: start: 20201230

REACTIONS (11)
  - Oropharyngeal pain [Unknown]
  - Inappropriate schedule of product administration [Unknown]
  - Blister [Unknown]
  - Tumour marker decreased [Unknown]
  - Weight decreased [Unknown]
  - Mouth swelling [Unknown]
  - Drug ineffective [Unknown]
  - Nausea [Unknown]
  - Decreased appetite [Unknown]
  - Diarrhoea [Unknown]
  - Constipation [Unknown]
